FAERS Safety Report 10673960 (Version 1)
Quarter: 2014Q4

REPORT INFORMATION
  Report Type: Spontaneous
  Country: US (occurrence: None)
  Receive Date: 20141222
  Receipt Date: 20141222
  Transmission Date: 20150529
  Serious: Yes (Other)
  Sender: FDA-Public Use
  Company Number: US-2014VAL000659

PATIENT
  Age: 68 Year
  Sex: Female

DRUGS (5)
  1. AMIODARONE (AMIODARONE) [Concomitant]
     Active Substance: AMIODARONE
  2. BUMETANIDE. [Suspect]
     Active Substance: BUMETANIDE
     Indication: CARDIAC FAILURE ACUTE
     Dosage: 2 MG, BOLUS, INTRAVENOUS
     Route: 042
  3. FUROSEMIDE (FUROSEMIDE) [Concomitant]
     Active Substance: FUROSEMIDE
  4. CHLORTHALIDONE (CHLORTALIDONE) [Concomitant]
     Active Substance: CHLORTHALIDONE
  5. SPIRONOLACTON (SPIRONOLACTONE) [Concomitant]

REACTIONS (3)
  - Pain of skin [None]
  - Pain [None]
  - Infusion related reaction [None]
